FAERS Safety Report 12968644 (Version 2)
Quarter: 2016Q4

REPORT INFORMATION
  Report Type: Spontaneous
  Country: US (occurrence: US)
  Receive Date: 20161123
  Receipt Date: 20161222
  Transmission Date: 20170207
  Serious: Yes (Hospitalization, Other)
  Sender: FDA-Public Use
  Company Number: US-BAYER-2016-223477

PATIENT
  Age: 24 Year
  Sex: Female
  Weight: 90.25 kg

DRUGS (2)
  1. MIRENA [Suspect]
     Active Substance: LEVONORGESTREL
     Indication: CONTRACEPTION
  2. MIRENA [Suspect]
     Active Substance: LEVONORGESTREL
     Indication: CONTRACEPTION
     Dosage: 20 MCG/24HR, CONT
     Route: 015
     Dates: start: 20120726, end: 20160929

REACTIONS (3)
  - Embedded device [Recovered/Resolved with Sequelae]
  - Device breakage [Recovered/Resolved with Sequelae]
  - Device difficult to use [Recovered/Resolved with Sequelae]

NARRATIVE: CASE EVENT DATE: 20160929
